FAERS Safety Report 18235446 (Version 1)
Quarter: 2020Q3

REPORT INFORMATION
  Report Type: Spontaneous
  Country: FR (occurrence: FR)
  Receive Date: 20200905
  Receipt Date: 20200905
  Transmission Date: 20201103
  Serious: Yes (Hospitalization, Other)
  Sender: FDA-Public Use
  Company Number: FR-ACCORD-198955

PATIENT
  Age: 69 Year
  Sex: Male

DRUGS (4)
  1. RIVASTIGMINE/RIVASTIGMINE TARTRATE [Concomitant]
     Active Substance: RIVASTIGMINE
     Indication: DEMENTIA WITH LEWY BODIES
  2. LEVODOPA [Concomitant]
     Active Substance: LEVODOPA
     Indication: DEMENTIA WITH LEWY BODIES
  3. OLANZAPINE. [Suspect]
     Active Substance: OLANZAPINE
     Indication: DEMENTIA WITH LEWY BODIES
     Dosage: REDUCED TO 7.5 MG
  4. SERTRALINE [Suspect]
     Active Substance: SERTRALINE HYDROCHLORIDE
     Indication: DEMENTIA WITH LEWY BODIES
     Dosage: REDUCED TO 100 MG/DAY

REACTIONS (8)
  - Extrapyramidal disorder [Unknown]
  - Reduced facial expression [Unknown]
  - Suicidal ideation [Unknown]
  - Dyskinesia [Unknown]
  - Fall [Unknown]
  - Hallucination, visual [Unknown]
  - Irritability [Unknown]
  - Gait disturbance [Unknown]
